FAERS Safety Report 4455662-X (Version None)
Quarter: 2004Q3

REPORT INFORMATION
  Report Type: 
  Country: None (occurrence: None)
  Receive Date: 20040917
  Receipt Date: 20040830
  Transmission Date: 20050211
  Serious: Yes (Disabling)
  Sender: FDA-Public Use
  Company Number: JP_040904358

PATIENT
  Age: 79 Year
  Sex: Male

DRUGS (4)
  1. ONCOVIN [Suspect]
     Indication: LYMPHOMA
     Dosage: 2 MG OTHER
     Dates: start: 20040520
  2. PIRARUBICIN [Concomitant]
  3. CYCLOPHOSPHAMIDE [Concomitant]
  4. PREDNISOLONE [Concomitant]

REACTIONS (2)
  - DISEASE RECURRENCE [None]
  - PARALYSIS [None]
